FAERS Safety Report 5889171-8 (Version None)
Quarter: 2008Q3

REPORT INFORMATION
  Report Type: 
  Country: None (occurrence: None)
  Receive Date: 20080917
  Receipt Date: 20080902
  Transmission Date: 20090109
  Serious: Yes (Other)
  Sender: FDA-Public Use
  Company Number: TNZFR200800094

PATIENT
  Age: 59 Year
  Sex: Female
  Weight: 60 kg

DRUGS (3)
  1. INNOHEP [Suspect]
     Indication: THROMBOSIS PROPHYLAXIS
     Dosage: 3500 IU, DAILY), SUBCUTANEOUS
     Route: 058
     Dates: start: 20080608, end: 20080609
  2. TRIVASTAL (PIRIBEDIL) [Concomitant]
  3. SINEMET [Concomitant]

REACTIONS (4)
  - DYSPNOEA [None]
  - FEELING COLD [None]
  - HYPERHIDROSIS [None]
  - TREMOR [None]
